FAERS Safety Report 18325576 (Version 1)
Quarter: 2020Q3

REPORT INFORMATION
  Report Type: Spontaneous
  Country: NO (occurrence: NO)
  Receive Date: 20200929
  Receipt Date: 20200929
  Transmission Date: 20201103
  Serious: Yes (Hospitalization)
  Sender: FDA-Public Use
  Company Number: NO-SAMSUNG BIOEPIS-SB-2020-29078

PATIENT
  Age: 54 Year
  Sex: Female

DRUGS (1)
  1. FLIXABI [Suspect]
     Active Substance: INFLIXIMAB
     Indication: CROHN^S DISEASE
     Dosage: UNKNOWN, PATIENT HAS ONLY RECEIVED 2 INDUCTION PHASE INJECTIONS
     Route: 042

REACTIONS (1)
  - Acute generalised exanthematous pustulosis [Recovering/Resolving]
